FAERS Safety Report 24580412 (Version 1)
Quarter: 2024Q4

REPORT INFORMATION
  Report Type: Spontaneous
  Country: US (occurrence: None)
  Receive Date: 20241104
  Receipt Date: 20241104
  Transmission Date: 20250115
  Serious: Yes (Hospitalization)
  Sender: Public
  Company Number: None

PATIENT
  Age: 79 Year
  Sex: Female

DRUGS (1)
  1. NUPLAZID [Suspect]
     Active Substance: PIMAVANSERIN TARTRATE
     Indication: Dementia with Lewy bodies
     Dosage: 34 MG DAILY ORAL
     Route: 048
     Dates: start: 20240311

REACTIONS (2)
  - Uterine cancer [None]
  - Neoplasm recurrence [None]

NARRATIVE: CASE EVENT DATE: 20241015
